FAERS Safety Report 8943373 (Version 1)
Quarter: 2012Q4

REPORT INFORMATION
  Report Type: 
  Country: FR (occurrence: FR)
  Receive Date: 20121204
  Receipt Date: 20121204
  Transmission Date: 20130627
  Serious: Yes (Other)
  Sender: FDA-Public Use
  Company Number: FR-PFIZER INC-2012299875

PATIENT
  Age: 63 Year
  Sex: Male

DRUGS (2)
  1. TAHOR [Suspect]
     Dosage: 10 mg, 1x/day
     Route: 048
     Dates: start: 201102, end: 201207
  2. TAVANIC [Suspect]
     Indication: INFECTION
     Dosage: UNK
     Route: 048
     Dates: start: 201202, end: 201202

REACTIONS (2)
  - Tendon disorder [Recovered/Resolved]
  - Myalgia [Recovered/Resolved]
